FAERS Safety Report 6101995-0 (Version None)
Quarter: 2009Q1

REPORT INFORMATION
  Report Type: 
  Country: None (occurrence: None)
  Receive Date: 20090304
  Receipt Date: 19960401
  Transmission Date: 20090719
  Serious: No
  Sender: FDA-Public Use
  Company Number: US-ABBOTT-08P-163-0458648-00

PATIENT
  Age: 80 Year

DRUGS (2)
  1. VALPROATE SODIUM [Suspect]
     Indication: ABNORMAL BEHAVIOUR
  2. TRAZODONE HYDROCHLORIDE [Concomitant]
     Indication: DEMENTIA

REACTIONS (2)
  - ABNORMAL BEHAVIOUR [None]
  - HALLUCINATION [None]
